FAERS Safety Report 19011438 (Version 1)
Quarter: 2021Q1

REPORT INFORMATION
  Report Type: Spontaneous
  Country: US (occurrence: US)
  Receive Date: 20210315
  Receipt Date: 20210315
  Transmission Date: 20210420
  Serious: Yes (Disabling, Other)
  Sender: FDA-Public Use
  Company Number: None

PATIENT
  Age: 7 Month
  Sex: Female

DRUGS (4)
  1. VANICREAM LOTION [Concomitant]
  2. TRETINOIN RETIN A [Concomitant]
  3. ELTAMD UV PHYSICAL SPF41 [Suspect]
     Active Substance: TITANIUM DIOXIDE\ZINC OXIDE
     Indication: PROPHYLAXIS AGAINST SOLAR RADIATION
     Dosage: ?          OTHER FREQUENCY:APPLY LIBERALLY;?
     Route: 061
     Dates: start: 20210314, end: 20210314
  4. VANICREAM FACE WASH [Concomitant]

REACTIONS (4)
  - Urticaria [None]
  - Burning sensation [None]
  - Pain [None]
  - Erythema [None]

NARRATIVE: CASE EVENT DATE: 20210314
